FAERS Safety Report 9563824 (Version 1)
Quarter: 2013Q3

REPORT INFORMATION
  Report Type: Spontaneous
  Country: US (occurrence: None)
  Receive Date: 20130926
  Receipt Date: 20130926
  Transmission Date: 20140515
  Serious: No
  Sender: FDA-Public Use
  Company Number: None

PATIENT
  Age: 5 Year
  Sex: Male
  Weight: 22.68 kg

DRUGS (1)
  1. MIRALAX [Suspect]
     Indication: CONSTIPATION
     Dosage: ONCE DAILY.TAKEN BY MOUTH
     Route: 048

REACTIONS (10)
  - Nausea [None]
  - Gastrooesophageal reflux disease [None]
  - Abdominal pain [None]
  - Micturition urgency [None]
  - Anxiety [None]
  - Hallucination [None]
  - Obsessive-compulsive disorder [None]
  - Fear [None]
  - Thinking abnormal [None]
  - Abnormal behaviour [None]
